FAERS Safety Report 24819817 (Version 1)
Quarter: 2025Q1

REPORT INFORMATION
  Report Type: Spontaneous
  Country: US (occurrence: US)
  Receive Date: 20250108
  Receipt Date: 20250108
  Transmission Date: 20250408
  Serious: Yes (Other)
  Sender: MYLAN
  Company Number: US-MYLANLABS-2025M1000909

PATIENT
  Age: 31 Year
  Sex: Male

DRUGS (6)
  1. PREDNISONE [Suspect]
     Active Substance: PREDNISONE
     Indication: Pyoderma gangrenosum
     Route: 065
  2. CYCLOSPORINE [Suspect]
     Active Substance: CYCLOSPORINE
     Indication: Pyoderma gangrenosum
     Route: 065
  3. DAPSONE [Suspect]
     Active Substance: DAPSONE
     Indication: Pyoderma gangrenosum
     Route: 065
  4. TOFACITINIB [Suspect]
     Active Substance: TOFACITINIB
     Indication: Pyoderma gangrenosum
     Route: 065
  5. UPADACITINIB [Concomitant]
     Active Substance: UPADACITINIB
     Indication: Pyoderma gangrenosum
     Dosage: 30 MILLIGRAM, QD
     Route: 065
  6. SECUKINUMAB [Concomitant]
     Active Substance: SECUKINUMAB
     Indication: Sacroiliitis
     Route: 065

REACTIONS (2)
  - Drug ineffective [Unknown]
  - Off label use [Unknown]
